FAERS Safety Report 12313693 (Version 1)
Quarter: 2016Q2

REPORT INFORMATION
  Report Type: Spontaneous
  Country: US (occurrence: None)
  Receive Date: 20160427
  Receipt Date: 20160427
  Transmission Date: 20160815
  Serious: No
  Sender: FDA-Public Use
  Company Number: None

PATIENT
  Age: 65 Year
  Sex: Female
  Weight: 57.61 kg

DRUGS (5)
  1. CITICAL CALCIUM [Concomitant]
  2. VITAMIN D3-50000IU [Concomitant]
  3. CHAMOMILOE TEA [Concomitant]
  4. PROLIA [Suspect]
     Active Substance: DENOSUMAB
     Indication: OSTEOPOROSIS
     Dates: start: 20160311
  5. REEN TEA [Concomitant]

REACTIONS (15)
  - Pain in jaw [None]
  - Pain in extremity [None]
  - Headache [None]
  - Night sweats [None]
  - Ear pain [None]
  - Hypoaesthesia [None]
  - Arthralgia [None]
  - Blister [None]
  - Chest pain [None]
  - Feeling abnormal [None]
  - Anxiety [None]
  - Dizziness [None]
  - Back pain [None]
  - Oropharyngeal pain [None]
  - Insomnia [None]

NARRATIVE: CASE EVENT DATE: 20160311
